FAERS Safety Report 8423304-4 (Version None)
Quarter: 2012Q2

REPORT INFORMATION
  Report Type: 
  Country: None (occurrence: None)
  Receive Date: 20120608
  Receipt Date: 20120529
  Transmission Date: 20120825
  Serious: Yes (Death, Hospitalization, Disabling, Other)
  Sender: FDA-Public Use
  Company Number: US-ACTELION-A-NJ2011-52683

PATIENT

DRUGS (1)
  1. TRACLEER [Suspect]
     Indication: PULMONARY ARTERIAL HYPERTENSION
     Dosage: UNK
     Route: 048
     Dates: start: 20050331

REACTIONS (10)
  - PRURITUS [None]
  - PRESYNCOPE [None]
  - HEPATIC CIRRHOSIS [None]
  - HEPATIC ENZYME INCREASED [None]
  - FATIGUE [None]
  - ABDOMINAL PAIN UPPER [None]
  - CARDIAC FAILURE CONGESTIVE [None]
  - ABDOMINAL DISCOMFORT [None]
  - DEATH [None]
  - HEPATOMEGALY [None]
